FAERS Safety Report 5343841-9 (Version None)
Quarter: 2007Q2

REPORT INFORMATION
  Report Type: 
  Country: None (occurrence: None)
  Receive Date: 20070531
  Receipt Date: 20070522
  Transmission Date: 20071010
  Serious: Yes (Hospitalization)
  Sender: FDA-Public Use
  Company Number: 2007-00909

PATIENT
  Age: 72 Year
  Sex: Male

DRUGS (20)
  1. VELCADE [Suspect]
     Indication: MULTIPLE MYELOMA
     Dosage: SEE IMAGE
     Dates: start: 20050504, end: 20060831
  2. VELCADE [Suspect]
     Indication: MULTIPLE MYELOMA
     Dosage: SEE IMAGE
     Dates: start: 20061016, end: 20070115
  3. DEXAMETHASONE [Suspect]
     Indication: MULTIPLE MYELOMA
     Dosage: SEE IMAGE
     Dates: start: 20050507, end: 20060213
  4. DEXAMETHASONE [Suspect]
     Indication: MULTIPLE MYELOMA
     Dosage: SEE IMAGE
     Dates: start: 20060501, end: 20070118
  5. THALIDOMIDE [Suspect]
     Indication: MULTIPLE MYELOMA
     Dosage: SEE IMAGE
     Dates: start: 20050507, end: 20060213
  6. THALIDOMIDE [Suspect]
     Indication: MULTIPLE MYELOMA
     Dosage: SEE IMAGE
     Dates: start: 20060501, end: 20061015
  7. THALIDOMIDE [Suspect]
     Indication: MULTIPLE MYELOMA
     Dosage: SEE IMAGE
     Dates: start: 20061016, end: 20070210
  8. CISPLATIN [Suspect]
     Indication: MULTIPLE MYELOMA
     Dosage: SEE IMAGE
     Dates: start: 20050507, end: 20050615
  9. CISPLATIN [Suspect]
     Indication: MULTIPLE MYELOMA
     Dosage: SEE IMAGE
     Dates: start: 20051201, end: 20060213
  10. DOXORUBICIN HCL [Suspect]
     Indication: MULTIPLE MYELOMA
     Dosage: SEE IMAGE
     Dates: start: 20050507, end: 20050615
  11. DOXORUBICIN HCL [Suspect]
     Indication: MULTIPLE MYELOMA
     Dosage: SEE IMAGE
     Dates: start: 20051201, end: 20060213
  12. CYCLOPHOSPHAMIDE [Suspect]
     Indication: MULTIPLE MYELOMA
     Dosage: SEE IMAGE
     Dates: start: 20050507, end: 20050615
  13. CYCLOPHOSPHAMIDE [Suspect]
     Indication: MULTIPLE MYELOMA
     Dosage: SEE IMAGE
     Dates: start: 20051201, end: 20060213
  14. ETOPOSIDE [Suspect]
     Indication: MULTIPLE MYELOMA
     Dosage: SEE IMAGE
     Dates: start: 20050507, end: 20050615
  15. ETOPOSIDE [Suspect]
     Indication: MULTIPLE MYELOMA
     Dosage: SEE IMAGE
     Dates: start: 20051201, end: 20060213
  16. MELPHALAN (MELPHALAN) VIAL [Suspect]
     Indication: MULTIPLE MYELOMA
     Dosage: SEE IMAGE
     Dates: start: 20050701
  17. MELPHALAN (MELPHALAN) VIAL [Suspect]
     Indication: MULTIPLE MYELOMA
     Dosage: SEE IMAGE
     Dates: start: 20050901
  18. ACYCLOVIR [Concomitant]
  19. ZANTAC [Concomitant]
  20. SENNA (SENNA) [Concomitant]

REACTIONS (3)
  - DRUG TOXICITY [None]
  - ENTEROVESICAL FISTULA [None]
  - PNEUMATURIA [None]
